FAERS Safety Report 5892536-1 (Version None)
Quarter: 2008Q3

REPORT INFORMATION
  Report Type: 
  Country: None (occurrence: None)
  Receive Date: 20080923
  Receipt Date: 20080912
  Transmission Date: 20090109
  Serious: Yes (Other)
  Sender: FDA-Public Use
  Company Number: US-BAYER-200826444GPV

PATIENT
  Age: 54 Year
  Sex: Male

DRUGS (9)
  1. CAMPATH [Suspect]
     Indication: IMMUNOSUPPRESSION
     Dosage: TOTAL DAILY DOSE: 30 MG
     Route: 065
     Dates: start: 20061101, end: 20061101
  2. TACROLIMUS [Concomitant]
     Indication: IMMUNOSUPPRESSION
     Route: 061
     Dates: start: 20061101
  3. TACROLIMUS [Concomitant]
     Route: 065
     Dates: start: 20061101, end: 20070501
  4. TACROLIMUS [Concomitant]
     Route: 065
  5. CELLCEPT [Concomitant]
     Indication: IMMUNOSUPPRESSION
     Route: 065
  6. CELLCEPT [Concomitant]
     Route: 065
     Dates: start: 20061101
  7. STEROIDS [Concomitant]
     Indication: DRUG TOXICITY PROPHYLAXIS
     Route: 065
  8. VALCYTE [Concomitant]
     Indication: ANTIVIRAL PROPHYLAXIS
     Route: 065
  9. BACTRIM [Concomitant]
     Indication: INFECTION PROPHYLAXIS
     Route: 065

REACTIONS (4)
  - CYTOMEGALOVIRUS INFECTION [None]
  - LEUKOPENIA [None]
  - LYMPHOPENIA [None]
  - TRANSPLANT REJECTION [None]
